FAERS Safety Report 19082219 (Version 2)
Quarter: 2021Q2

REPORT INFORMATION
  Report Type: Spontaneous
  Country: US (occurrence: US)
  Receive Date: 20210401
  Receipt Date: 20210628
  Transmission Date: 20210717
  Serious: Yes (Hospitalization)
  Sender: FDA-Public Use
  Company Number: US-ELI_LILLY_AND_COMPANY-US202103013182

PATIENT
  Age: 42 Year
  Sex: Female
  Weight: 93.88 kg

DRUGS (2)
  1. BAMLANIVIMAB 700MG [Suspect]
     Active Substance: BAMLANIVIMAB
     Indication: COVID-19 PNEUMONIA
     Dosage: 700 MG, SINGLE
     Route: 042
     Dates: start: 20210319, end: 20210319
  2. MAGNESIUM [Concomitant]
     Active Substance: MAGNESIUM
     Indication: PRE-ECLAMPSIA
     Dosage: UNK UNK, UNKNOWN
     Route: 041

REACTIONS (8)
  - Acute pulmonary oedema [Unknown]
  - Dyspnoea [Unknown]
  - Fluid overload [Unknown]
  - Tachypnoea [Unknown]
  - COVID-19 [Unknown]
  - Orthopnoea [Unknown]
  - Hypoxia [Unknown]
  - Peripartum cardiomyopathy [Unknown]

NARRATIVE: CASE EVENT DATE: 20210319
